FAERS Safety Report 8082521-6 (Version None)
Quarter: 2012Q1

REPORT INFORMATION
  Report Type: 
  Country: None (occurrence: None)
  Receive Date: 20120127
  Receipt Date: 20110219
  Transmission Date: 20120608
  Serious: Yes (Hospitalization)
  Sender: FDA-Public Use
  Company Number: US-ABBOTT-11P-163-0706712-00

PATIENT
  Sex: Female
  Weight: 61.29 kg

DRUGS (6)
  1. HUMIRA [Suspect]
     Indication: CROHN'S DISEASE
     Dates: start: 20100309
  2. IMURAN [Concomitant]
     Indication: CROHN'S DISEASE
  3. UNNAMED STEROID DRUGS [Suspect]
     Indication: CROHN'S DISEASE
  4. ASPIRIN [Concomitant]
     Indication: HIP SURGERY
  5. TOPROL-XL [Concomitant]
     Indication: TACHYCARDIA
  6. ASPIRIN [Concomitant]
     Indication: THROMBOSIS PROPHYLAXIS
     Dates: start: 20100901

REACTIONS (5)
  - PARAESTHESIA [None]
  - PAIN IN EXTREMITY [None]
  - HYPOAESTHESIA [None]
  - OSTEONECROSIS [None]
  - MUSCULOSKELETAL PAIN [None]
